FAERS Safety Report 17647321 (Version 1)
Quarter: 2020Q2

REPORT INFORMATION
  Report Type: Spontaneous
  Country: US (occurrence: US)
  Receive Date: 20200409
  Receipt Date: 20200409
  Transmission Date: 20200713
  Serious: No
  Sender: FDA-Public Use
  Company Number: US-JNJFOC-20200315799

PATIENT
  Sex: Female
  Weight: 81.72 kg

DRUGS (1)
  1. TYLENOL [Suspect]
     Active Substance: ACETAMINOPHEN
     Indication: PAIN
     Dosage: PRODUCT START DATE : SHE BELIVE 7-10 DAYS
     Route: 048

REACTIONS (1)
  - Incorrect dose administered [Unknown]
